FAERS Safety Report 8647106 (Version 2)
Quarter: 2012Q4

REPORT INFORMATION
  Report Type: 
  Country: JP (occurrence: JP)
  Receive Date: 20120703
  Receipt Date: 20120912
  Transmission Date: 20130627
  Serious: Yes (Hospitalization)
  Sender: FDA-Public Use
  Company Number: PHHY2012JP056317

PATIENT
  Age: 74 Year
  Sex: Female

DRUGS (4)
  1. EXELON PATCH [Suspect]
     Indication: DEMENTIA ALZHEIMER^S TYPE
     Dosage: 4.5 mg, daily
     Route: 062
     Dates: start: 20120329, end: 20120426
  2. EXELON PATCH [Suspect]
     Dosage: 9 mg, daily
     Route: 062
     Dates: start: 20120427, end: 20120501
  3. MAINTATE [Concomitant]
     Route: 048
  4. REMINYL [Concomitant]
     Dosage: 4 mg, BID
     Route: 048
     Dates: start: 201203

REACTIONS (3)
  - Mallory-Weiss syndrome [Recovering/Resolving]
  - Gastric ulcer [Unknown]
  - Haematemesis [Recovering/Resolving]
